FAERS Safety Report 5442837-6 (Version None)
Quarter: 2007Q3

REPORT INFORMATION
  Report Type: 
  Country: None (occurrence: None)
  Receive Date: 20070830
  Receipt Date: 20070816
  Transmission Date: 20080115
  Serious: Yes (Hospitalization)
  Sender: FDA-Public Use
  Company Number: 236913K07USA

PATIENT
  Age: 41 Year
  Sex: Female

DRUGS (5)
  1. REBIF [Suspect]
     Indication: MULTIPLE SCLEROSIS
     Dosage: 44 MCG, 3 IN 1 WEEKS, SUBCUTANEOUS
     Route: 058
     Dates: start: 20011101, end: 20061101
  2. REBIF [Suspect]
     Indication: MULTIPLE SCLEROSIS
     Dosage: 44 MCG, 3 IN 1 WEEKS, SUBCUTANEOUS
     Route: 058
     Dates: start: 20070212
  3. WELLBUTRIN [Concomitant]
  4. IBUPROFEN [Concomitant]
  5. OXYBUTYNIN CHLORIDE [Concomitant]

REACTIONS (5)
  - ABASIA [None]
  - CELLULITIS [None]
  - DISCOMFORT [None]
  - INJECTION SITE PAIN [None]
  - PAIN IN EXTREMITY [None]
